FAERS Safety Report 5888489-2 (Version None)
Quarter: 2008Q3

REPORT INFORMATION
  Report Type: 
  Country: None (occurrence: None)
  Receive Date: 20080918
  Receipt Date: 20080912
  Transmission Date: 20090109
  Serious: Yes (Other)
  Sender: FDA-Public Use
  Company Number: ES-BAYER-200825871GPV

PATIENT
  Age: 65 Year
  Sex: Male

DRUGS (1)
  1. IOPROMIDE [Suspect]
     Indication: COMPUTERISED TOMOGRAM
     Route: 042

REACTIONS (4)
  - ASTHENIA [None]
  - CHOLESTASIS [None]
  - HEPATIC ENZYME INCREASED [None]
  - HEPATOTOXICITY [None]
